FAERS Safety Report 12781565 (Version 1)
Quarter: 2016Q3

REPORT INFORMATION
  Report Type: Spontaneous
  Country: US (occurrence: US)
  Receive Date: 20160926
  Receipt Date: 20160926
  Transmission Date: 20161109
  Serious: No
  Sender: FDA-Public Use
  Company Number: US-ALLERGAN-1661694US

PATIENT
  Sex: Female

DRUGS (1)
  1. CARAFATE [Suspect]
     Active Substance: SUCRALFATE
     Indication: DYSPHAGIA
     Dosage: TEASPOON IN THE MORNING AND ONE TEASPOON IN THE EVENING
     Route: 048
     Dates: end: 201606

REACTIONS (3)
  - Weight increased [Not Recovered/Not Resolved]
  - Abdominal distension [Not Recovered/Not Resolved]
  - Off label use [Unknown]
